FAERS Safety Report 5233711-9 (Version None)
Quarter: 2007Q1

REPORT INFORMATION
  Report Type: 
  Country: None (occurrence: None)
  Receive Date: 20070208
  Receipt Date: 20070202
  Transmission Date: 20070707
  Serious: Yes (Hospitalization, Other)
  Sender: FDA-Public Use
  Company Number: JP-JPN-A200700013

PATIENT
  Age: 29 Year
  Sex: Female
  Weight: 42 kg

DRUGS (13)
  1. VALTREX [Suspect]
     Indication: HERPES ZOSTER
     Dosage: 1000MG TWICE PER DAY
     Route: 048
     Dates: start: 20070102, end: 20070102
  2. CYANOCOBALAMIN [Concomitant]
     Indication: HERPES ZOSTER
     Dosage: 1000MCG PER DAY
     Route: 048
     Dates: start: 20070102, end: 20070102
  3. ONEALFA [Concomitant]
     Indication: OSTEOPOROSIS
     Dosage: .5MG PER DAY
     Route: 048
  4. ZYLORIC [Concomitant]
     Indication: HYPERURICAEMIA
     Dosage: 100MG PER DAY
     Route: 048
  5. GASTER D [Concomitant]
     Indication: GASTRITIS
     Dosage: 10MG PER DAY
     Route: 048
  6. BLOPRESS [Concomitant]
     Indication: HYPERTENSION
     Dosage: 4MG PER DAY
     Route: 048
  7. CALTAN [Concomitant]
     Dosage: 3000MG PER DAY
     Route: 048
  8. RENAGEL [Concomitant]
     Indication: HYPERPHOSPHATAEMIA
     Dosage: 1500MG PER DAY
     Route: 048
  9. SELBEX [Concomitant]
     Indication: GASTRITIS
     Dosage: 150MG PER DAY
     Route: 048
  10. CINAL [Concomitant]
     Indication: HYPOVITAMINOSIS
     Dosage: 400MG PER DAY
     Route: 048
  11. PREDNISOLONE [Concomitant]
     Indication: NEPHRITIS
     Dosage: 3MG PER DAY
     Route: 048
  12. JUVELA [Concomitant]
     Indication: PERIPHERAL CIRCULATORY FAILURE
     Dosage: 200MG PER DAY
     Route: 048
  13. OPALMON [Concomitant]
     Indication: PERIPHERAL CIRCULATORY FAILURE
     Dosage: 15MCG PER DAY
     Route: 048

REACTIONS (15)
  - ABNORMAL BEHAVIOUR [None]
  - ALANINE AMINOTRANSFERASE INCREASED [None]
  - BASOPHIL COUNT INCREASED [None]
  - BLOOD ALKALINE PHOSPHATASE INCREASED [None]
  - BLOOD CREATININE INCREASED [None]
  - BLOOD SODIUM DECREASED [None]
  - BLOOD UREA INCREASED [None]
  - DYSSTASIA [None]
  - ENCEPHALOPATHY [None]
  - HAEMODIALYSIS [None]
  - HAEMOGLOBIN DECREASED [None]
  - MENINGITIS [None]
  - PLATELET COUNT DECREASED [None]
  - RED BLOOD CELL COUNT DECREASED [None]
  - RESTLESSNESS [None]
